FAERS Safety Report 23656358 (Version 1)
Quarter: 2024Q1

REPORT INFORMATION
  Report Type: Spontaneous
  Country: SE (occurrence: SE)
  Receive Date: 20240321
  Receipt Date: 20240321
  Transmission Date: 20240410
  Serious: Yes (Disabling)
  Sender: FDA-Public Use
  Company Number: None

PATIENT
  Age: 31 Year
  Sex: Female
  Weight: 78 kg

DRUGS (2)
  1. BRINTELLIX [Suspect]
     Active Substance: VORTIOXETINE HYDROBROMIDE
     Indication: Perinatal depression
     Dosage: UNK
     Route: 048
     Dates: start: 20230911, end: 20231214
  2. PROMETHAZINE HYDROCHLORIDE\THIOUREA [Concomitant]
     Active Substance: PROMETHAZINE HYDROCHLORIDE\THIOUREA
     Indication: Product used for unknown indication
     Dosage: UNK UNK, QD
     Route: 048
     Dates: start: 20170101

REACTIONS (2)
  - Anorgasmia [Not Recovered/Not Resolved]
  - Sexual dysfunction [Not Recovered/Not Resolved]

NARRATIVE: CASE EVENT DATE: 20230920
